FAERS Safety Report 24179479 (Version 1)
Quarter: 2024Q3

REPORT INFORMATION
  Report Type: Spontaneous
  Country: US (occurrence: None)
  Receive Date: 20240805
  Receipt Date: 20240805
  Transmission Date: 20241017
  Serious: Yes (Death)
  Sender: Public
  Company Number: None

PATIENT
  Age: 63 Year
  Sex: Male
  Weight: 91.8 kg

DRUGS (1)
  1. MOUNJARO [Suspect]
     Active Substance: TIRZEPATIDE
     Indication: Weight decreased
     Dosage: OTHER FREQUENCY : ONCE A WEEK;
     Route: 030
     Dates: start: 20231101, end: 20240427

REACTIONS (1)
  - Sudden death [None]

NARRATIVE: CASE EVENT DATE: 20240427
